FAERS Safety Report 4443832-6 (Version None)
Quarter: 2004Q3

REPORT INFORMATION
  Report Type: 
  Country: None (occurrence: None)
  Receive Date: 20040830
  Receipt Date: 20040816
  Transmission Date: 20050211
  Serious: Yes (Other)
  Sender: FDA-Public Use
  Company Number: A0522171A

PATIENT
  Age: 46 Year
  Sex: Male
  Weight: 72.5302 kg

DRUGS (1)
  1. NICODERM CQ [Suspect]
     Indication: EX-SMOKER
     Dosage: 14 MG/PER DAY/ TRANSDERMAL
     Route: 062
     Dates: start: 20040801, end: 20040815

REACTIONS (1)
  - FACIAL PALSY [None]
